FAERS Safety Report 20966576 (Version 1)
Quarter: 2022Q2

REPORT INFORMATION
  Report Type: Spontaneous
  Country: JP (occurrence: JP)
  Receive Date: 20220616
  Receipt Date: 20220616
  Transmission Date: 20220721
  Serious: Yes (Hospitalization)
  Sender: FDA-Public Use
  Company Number: JP-LEADINGPHARMA-JP-2022LEALIT00092

PATIENT
  Sex: Female

DRUGS (6)
  1. LORAZEPAM [Suspect]
     Active Substance: LORAZEPAM
     Indication: Foetal exposure during pregnancy
     Route: 064
  2. DULOXETINE [Suspect]
     Active Substance: DULOXETINE
     Indication: Foetal exposure during pregnancy
     Route: 064
  3. FLUNITRAZEPAM [Suspect]
     Active Substance: FLUNITRAZEPAM
     Indication: Foetal exposure during pregnancy
     Route: 064
  4. ATOMOXETINE [Suspect]
     Active Substance: ATOMOXETINE
     Indication: Foetal exposure during pregnancy
     Route: 064
  5. TRAZODONE [Suspect]
     Active Substance: TRAZODONE HYDROCHLORIDE
     Indication: Foetal exposure during pregnancy
     Route: 064
  6. BROTIZOLAM [Suspect]
     Active Substance: BROTIZOLAM
     Indication: Foetal exposure during pregnancy
     Route: 064

REACTIONS (2)
  - Drug withdrawal syndrome neonatal [Recovered/Resolved]
  - Foetal exposure during pregnancy [Unknown]
